FAERS Safety Report 21008797 (Version 7)
Quarter: 2023Q2

REPORT INFORMATION
  Report Type: Spontaneous
  Country: US (occurrence: None)
  Receive Date: 20220627
  Receipt Date: 20230419
  Transmission Date: 20230721
  Serious: Yes (Hospitalization, Other)
  Sender: FDA-Public Use
  Company Number: US-Ultragenyx Pharmaceutical Inc.-US-UGNX-22-00406

PATIENT
  Age: 1 Year
  Sex: Male

DRUGS (2)
  1. DOJOLVI [Suspect]
     Active Substance: TRIHEPTANOIN
     Indication: Carnitine palmitoyltransferase deficiency
     Route: 048
     Dates: start: 20200922
  2. DOJOLVI [Suspect]
     Active Substance: TRIHEPTANOIN
     Dosage: 8 ML, FIVE TIMES DAILY VIA FEEDING TUBE
     Dates: start: 20200930

REACTIONS (5)
  - Cardiac therapeutic procedure [Not Recovered/Not Resolved]
  - Heart transplant [Not Recovered/Not Resolved]
  - Haematochezia [Not Recovered/Not Resolved]
  - Vomiting [Not Recovered/Not Resolved]
  - Diarrhoea [Not Recovered/Not Resolved]

NARRATIVE: CASE EVENT DATE: 20220706
